FAERS Safety Report 15659936 (Version 1)
Quarter: 2018Q4

REPORT INFORMATION
  Report Type: Spontaneous
  Country: CA (occurrence: CA)
  Receive Date: 20181127
  Receipt Date: 20181127
  Transmission Date: 20190205
  Serious: Yes (Hospitalization, Other)
  Sender: FDA-Public Use
  Company Number: CA-ACCORD-092881

PATIENT
  Age: 59 Year
  Sex: Female

DRUGS (11)
  1. CEFEPIME/CEFEPIME HYDROCHLORIDE [Concomitant]
  2. DOXYCYCLINE. [Concomitant]
     Active Substance: DOXYCYCLINE
  3. VANCOMYCIN/VANCOMYCIN HYDROCHLORIDE [Concomitant]
  4. POSACONAZOLE [Concomitant]
     Active Substance: POSACONAZOLE
  5. TIGECYCLINE. [Concomitant]
     Active Substance: TIGECYCLINE
  6. TACROLIMUS. [Suspect]
     Active Substance: TACROLIMUS
     Indication: GRAFT VERSUS HOST DISEASE
  7. PRIMAQUINE/PRIMAQUINE PHOSPHATE [Concomitant]
  8. MYCOPHENOLIC ACID. [Suspect]
     Active Substance: MYCOPHENOLIC ACID
     Indication: GRAFT VERSUS HOST DISEASE
  9. MEROPENEM/MEROPENEM TRIHYDRATE [Concomitant]
  10. CLINDAMYCIN/CLINDAMYCIN HYDROCHLORIDE/CLINDAMYCIN PALMITATE HYDROCHL/CLINDAMYCIN PHOSPHATE [Concomitant]
  11. SULFAMETHOXAZOLE/TRIMETHOPRIM [Concomitant]
     Active Substance: SULFAMETHOXAZOLE\TRIMETHOPRIM

REACTIONS (9)
  - Human ehrlichiosis [Unknown]
  - Acute kidney injury [Unknown]
  - Pneumonitis [Unknown]
  - Myocarditis [Unknown]
  - Pneumocystis jirovecii pneumonia [Unknown]
  - Febrile neutropenia [Unknown]
  - Thrombotic microangiopathy [Unknown]
  - Graft loss [Unknown]
  - Transaminases increased [Unknown]
